FAERS Safety Report 7670974-4 (Version None)
Quarter: 2011Q3

REPORT INFORMATION
  Report Type: 
  Country: None (occurrence: None)
  Receive Date: 20110809
  Receipt Date: 20110727
  Transmission Date: 20111222
  Serious: Yes (Other)
  Sender: FDA-Public Use
  Company Number: US-ELI_LILLY_AND_COMPANY-US201107008063

PATIENT
  Sex: Male

DRUGS (2)
  1. LANTUS [Concomitant]
     Dosage: UNK
  2. HUMALOG [Suspect]
     Indication: TYPE 1 DIABETES MELLITUS
     Dosage: 5 U, TID
     Dates: start: 20010101

REACTIONS (5)
  - ROAD TRAFFIC ACCIDENT [None]
  - BLOOD GLUCOSE INCREASED [None]
  - JOINT INJURY [None]
  - ACCIDENT [None]
  - LIGAMENT SPRAIN [None]
